FAERS Safety Report 5422887-6 (Version None)
Quarter: 2007Q3

REPORT INFORMATION
  Report Type: 
  Country: None (occurrence: None)
  Receive Date: 20070727
  Receipt Date: 20070622
  Transmission Date: 20080115
  Serious: Yes (Life-Threatening, Other)
  Sender: FDA-Public Use
  Company Number: 264823

PATIENT
  Age: 43 Year
  Sex: Male

DRUGS (3)
  1. LEVEMIR [Suspect]
     Indication: TYPE 1 DIABETES MELLITUS
     Dosage: 20 IU, BID, SUBCUTANEOUS 12 IU, BID, SUBCUTANEOUS
     Route: 058
     Dates: start: 20070618, end: 20070620
  2. LEVEMIR [Suspect]
     Indication: TYPE 1 DIABETES MELLITUS
     Dosage: 20 IU, BID, SUBCUTANEOUS 12 IU, BID, SUBCUTANEOUS
     Route: 058
     Dates: start: 20070621
  3. NOVOLOG [Concomitant]

REACTIONS (2)
  - ACCIDENTAL OVERDOSE [None]
  - HYPOGLYCAEMIC UNCONSCIOUSNESS [None]
